FAERS Safety Report 9691198 (Version 3)
Quarter: 2014Q2

REPORT INFORMATION
  Report Type: Report from Study
  Country: US (occurrence: US)
  Receive Date: 20131115
  Receipt Date: 20140425
  Transmission Date: 20141212
  Serious: Yes (Hospitalization, Other)
  Sender: FDA-Public Use
  Company Number: US-PURDUE-USA-2013-0108505

PATIENT
  Sex: Female
  Weight: 41.27 kg

DRUGS (2)
  1. OXY CR TAB [Suspect]
     Indication: BACK PAIN
     Dosage: 40 MG, Q12H
     Route: 048
     Dates: start: 1997
  2. OXY CR TAB [Suspect]
     Dosage: 80 MG, BID
     Route: 048

REACTIONS (7)
  - Surgery [Unknown]
  - Knee arthroplasty [Unknown]
  - Joint dislocation [Unknown]
  - Hospitalisation [Unknown]
  - Cardiac failure congestive [Not Recovered/Not Resolved]
  - Atrial fibrillation [Not Recovered/Not Resolved]
  - Dyspnoea [Unknown]
